FAERS Safety Report 25606446 (Version 1)
Quarter: 2025Q3

REPORT INFORMATION
  Report Type: Spontaneous
  Country: CA (occurrence: CA)
  Receive Date: 20250725
  Receipt Date: 20250725
  Transmission Date: 20251020
  Serious: Yes (Hospitalization, Other)
  Sender: JOHNSON AND JOHNSON
  Company Number: CA-JNJFOC-20250721101

PATIENT

DRUGS (4)
  1. ERLEADA [Suspect]
     Active Substance: APALUTAMIDE
     Indication: Product used for unknown indication
     Route: 048
  2. ERLEADA [Suspect]
     Active Substance: APALUTAMIDE
     Route: 065
  3. ERLEADA [Suspect]
     Active Substance: APALUTAMIDE
  4. ERLEADA [Suspect]
     Active Substance: APALUTAMIDE

REACTIONS (3)
  - Euglycaemic diabetic ketoacidosis [Unknown]
  - Delirium [Unknown]
  - Agitation [Unknown]
